FAERS Safety Report 6427553-6 (Version None)
Quarter: 2009Q4

REPORT INFORMATION
  Report Type: 
  Country: None (occurrence: None)
  Receive Date: 20091104
  Receipt Date: 20090727
  Transmission Date: 20100525
  Serious: Yes (Other)
  Sender: FDA-Public Use
  Company Number: US-PFIZER INC-2009237052

PATIENT
  Sex: Male

DRUGS (3)
  1. XALATAN [Suspect]
     Indication: GLAUCOMA
     Dosage: UNK
     Route: 047
  2. BRIMONIDINE [Concomitant]
     Dosage: UNK
     Route: 047
  3. AZOPT [Concomitant]
     Dosage: UNK
     Route: 047

REACTIONS (1)
  - GLAUCOMA [None]
